FAERS Safety Report 12389609 (Version 1)
Quarter: 2016Q2

REPORT INFORMATION
  Report Type: Spontaneous
  Country: JP (occurrence: JP)
  Receive Date: 20160520
  Receipt Date: 20160520
  Transmission Date: 20160815
  Serious: Yes (Other)
  Sender: FDA-Public Use
  Company Number: JP-PFIZER INC-2016260351

PATIENT
  Age: 88 Year
  Sex: Male

DRUGS (1)
  1. ZOSYN [Suspect]
     Active Substance: PIPERACILLIN SODIUM\TAZOBACTAM SODIUM
     Indication: SUBCUTANEOUS ABSCESS
     Dosage: 13.5 G, DAILY
     Route: 042

REACTIONS (2)
  - Enterocolitis haemorrhagic [Recovering/Resolving]
  - Product use issue [Unknown]
